FAERS Safety Report 6288032-2 (Version None)
Quarter: 2009Q3

REPORT INFORMATION
  Report Type: 
  Country: None (occurrence: None)
  Receive Date: 20090729
  Receipt Date: 20090720
  Transmission Date: 20100115
  Serious: Yes (Hospitalization)
  Sender: FDA-Public Use
  Company Number: GB-JNJFOC-20090601260

PATIENT
  Sex: Female
  Weight: 49 kg

DRUGS (11)
  1. REMICADE [Suspect]
     Indication: RHEUMATOID ARTHRITIS
     Route: 042
  2. METHOTREXATE [Concomitant]
  3. BENDROFLUAZIDE [Concomitant]
  4. CALCICHEW TABLETS [Concomitant]
  5. DIGOXIN [Concomitant]
  6. FOLIC ACID [Concomitant]
  7. FOSAMAX [Concomitant]
  8. ACETAMINOPHEN [Concomitant]
  9. RANITIDINE [Concomitant]
  10. WARFARIN SODIUM [Concomitant]
  11. CITALOPRAM HYDROBROMIDE [Concomitant]

REACTIONS (2)
  - CARDIAC FAILURE [None]
  - VOCAL CORD PARALYSIS [None]
